FAERS Safety Report 4284867-6 (Version None)
Quarter: 2004Q1

REPORT INFORMATION
  Report Type: 
  Country: None (occurrence: None)
  Receive Date: 20040202
  Receipt Date: 20040120
  Transmission Date: 20041129
  Serious: Yes (Other)
  Sender: FDA-Public Use
  Company Number: 2003191443GB

PATIENT
  Age: 32 Year
  Sex: Male

DRUGS (2)
  1. NICORETTE [Suspect]
     Indication: SMOKING CESSATION THERAPY
     Dosage: 15 MG, QD, TRANSDERMAL
     Route: 062
     Dates: start: 20030301, end: 20030516
  2. NICOTINE [Suspect]

REACTIONS (5)
  - COUGH [None]
  - LOSS OF CONSCIOUSNESS [None]
  - MEDICATION ERROR [None]
  - SYNCOPE [None]
  - TREATMENT NONCOMPLIANCE [None]
